FAERS Safety Report 12155813 (Version 2)
Quarter: 2018Q1

REPORT INFORMATION
  Report Type: Spontaneous
  Country: US (occurrence: US)
  Receive Date: 20160307
  Receipt Date: 20180322
  Transmission Date: 20180508
  Serious: Yes (Other)
  Sender: FDA-Public Use
  Company Number: US-TEVA-636996USA

PATIENT
  Age: 56 Year
  Sex: Female

DRUGS (18)
  1. DULOXETINE HYDROCHLORIDE. [Suspect]
     Active Substance: DULOXETINE HYDROCHLORIDE
     Indication: DEPRESSION
     Dosage: 40 MG ONCE DAILY, TAKE ONE CAPSULE BY MOUTH EVERY DAY
     Route: 065
     Dates: start: 201305
  2. PREVNAR [Suspect]
     Active Substance: PNEUMOCOCCAL 7-VALENT CONJUGATE VACCINE (DIPHTHERIA CRM197 PROTEIN)
     Dosage: TO BE ADMINISTERED BY PHARMACIST FOR IMMUNIZATION.
     Route: 065
  3. PANTOPRAZOLE [Concomitant]
     Active Substance: PANTOPRAZOLE
     Dosage: TAKE 1 TABLET BY MOUTH EVERY DAY
  4. DIVALPROEX [Suspect]
     Active Substance: DIVALPROEX SODIUM
     Dosage: 250 MG TWICE DAILY. TAKE 1 TABLET TWICE A DAY
     Route: 065
     Dates: start: 201305
  5. DULOXETINE HYDROCHLORIDE. [Suspect]
     Active Substance: DULOXETINE HYDROCHLORIDE
     Indication: FIBROMYALGIA
  6. RISPERIDONE. [Suspect]
     Active Substance: RISPERIDONE
     Dosage: 1 MG ONCE A DAY, TAKE 1 TABLET BY MOUTH EVERY DAY
     Route: 065
     Dates: start: 201305
  7. AFURIA [Concomitant]
  8. CYCLOBENZAPRINE. [Concomitant]
     Active Substance: CYCLOBENZAPRINE
  9. METHYLPREDNISOLONE. [Concomitant]
     Active Substance: METHYLPREDNISOLONE
     Dosage: TAKE 6 TABLETS ON DAY 1 AS DIRECTED ON PACKAGE AND DECREASED BY 1 TABLET EACH DAY FOR A TOTAL OF 8 D
  10. TRAZODONE [Suspect]
     Active Substance: TRAZODONE HYDROCHLORIDE
     Indication: SLEEP DISORDER
     Dosage: 50 MG, TAKE 1 TABLET EVERY DAY BY ORAL ROUTE
     Route: 065
     Dates: start: 201305
  11. ESTRADIOL. [Suspect]
     Active Substance: ESTRADIOL
     Dosage: 1 MG ONCE A DAY
     Route: 065
     Dates: start: 200002
  12. LYRICA [Suspect]
     Active Substance: PREGABALIN
     Indication: FIBROMYALGIA
     Dosage: TAKE 1 CAPSULE TWICE A DAY BY ORAL ROUTE
     Route: 048
     Dates: start: 201305
  13. BUPROPION. [Concomitant]
     Active Substance: BUPROPION
  14. VITAMIN D3 [Concomitant]
     Active Substance: CHOLECALCIFEROL
     Dosage: TAKE 1 CAPSULE EVERY DAY BY ORAL ROUTE
  15. TIZANIDINE HCL [Suspect]
     Active Substance: TIZANIDINE HYDROCHLORIDE
     Indication: MUSCLE SPASMS
     Dosage: 4 MILLIGRAM DAILY; TAKE TABLET BY MOUTH 2 MG TWICE DAILY
     Route: 065
     Dates: start: 201305
  16. TIZANIDINE HCL [Suspect]
     Active Substance: TIZANIDINE HYDROCHLORIDE
     Indication: MUSCLE SPASMS
  17. CHANTIX [Suspect]
     Active Substance: VARENICLINE TARTRATE
     Route: 065
  18. MELOXICAM. [Concomitant]
     Active Substance: MELOXICAM
     Dosage: TAKE 1 TABLET BY MOUTH EVERY DAY

REACTIONS (3)
  - Mental disorder [Unknown]
  - Disability [Unknown]
  - Product use in unapproved indication [Unknown]

NARRATIVE: CASE EVENT DATE: 201305
